FAERS Safety Report 23514635 (Version 2)
Quarter: 2024Q1

REPORT INFORMATION
  Report Type: Spontaneous
  Country: US (occurrence: US)
  Receive Date: 20240212
  Receipt Date: 20240318
  Transmission Date: 20240410
  Serious: No
  Sender: FDA-Public Use
  Company Number: US-PFIZER INC-202400035842

PATIENT
  Age: 75 Year
  Sex: Male

DRUGS (1)
  1. TIKOSYN [Suspect]
     Active Substance: DOFETILIDE
     Dosage: 500 MCG, PRESCRIBED TO TAKE 2 A DAY, HAS BEEN TAKING 1 A DAY, TRYING TO MAKE IT LAST
     Dates: start: 202310

REACTIONS (2)
  - Hypoacusis [Unknown]
  - Intentional product use issue [Unknown]
